FAERS Safety Report 10166242 (Version 2)
Quarter: 2014Q2

REPORT INFORMATION
  Report Type: Spontaneous
  Country: FR (occurrence: FR)
  Receive Date: 20140512
  Receipt Date: 20140602
  Transmission Date: 20141212
  Serious: Yes (Hospitalization, Other)
  Sender: FDA-Public Use
  Company Number: FR-009507513-1405FRA003591

PATIENT
  Sex: Female
  Weight: 62 kg

DRUGS (3)
  1. FOSAVANCE [Suspect]
     Indication: OSTEOPOROSIS
     Dosage: 1 DF, QW
     Route: 048
     Dates: start: 2011
  2. FLUDEX [Concomitant]
     Indication: HYPERTENSION
  3. KALEORID [Concomitant]

REACTIONS (1)
  - Sudden hearing loss [Not Recovered/Not Resolved]
